FAERS Safety Report 5657410-4 (Version None)
Quarter: 2008Q1

REPORT INFORMATION
  Report Type: 
  Country: None (occurrence: None)
  Receive Date: 20080310
  Receipt Date: 20080305
  Transmission Date: 20080703
  Serious: Yes (Death, Life-Threatening)
  Sender: FDA-Public Use
  Company Number: IN-ELI_LILLY_AND_COMPANY-IN200708002424

PATIENT
  Sex: Male
  Weight: 66 kg

DRUGS (24)
  1. PEMETREXED [Suspect]
     Indication: SMALL CELL LUNG CANCER EXTENSIVE STAGE
     Dosage: 800 MG
     Route: 042
     Dates: start: 20070806
  2. CARBOPLATIN [Suspect]
     Indication: NON-SMALL CELL LUNG CANCER METASTATIC
     Dosage: 715 MG, UNKNOWN
     Route: 042
     Dates: start: 20070806
  3. RICONIA [Concomitant]
     Dosage: UNK, UNKNOWN
     Route: 065
     Dates: start: 20070728
  4. PANTOPRAZOLE [Concomitant]
     Indication: GASTRITIS PROPHYLAXIS
     Dosage: UNK, UNKNOWN
     Route: 065
     Dates: start: 20070728
  5. HEXIDIN [Concomitant]
  6. REGLAN [Concomitant]
     Indication: VOMITING
     Dosage: UNK, UNKNOWN
     Route: 065
     Dates: start: 20070728
  7. THEOPHYLLINE [Concomitant]
     Indication: BRONCHOSPASM
     Dosage: UNK, UNKNOWN
     Route: 065
     Dates: start: 20070728
  8. UDILIV [Concomitant]
     Dosage: UNK, UNKNOWN
     Route: 065
     Dates: start: 20070801
  9. ZYLORIC [Concomitant]
     Indication: HYPERURICAEMIA
     Dosage: UNK, UNKNOWN
     Route: 065
     Dates: start: 20070801
  10. ATIVAN [Concomitant]
     Indication: SEDATIVE THERAPY
     Dosage: UNK, UNKNOWN
     Route: 065
     Dates: start: 20070801
  11. TRANEXAMIC ACID [Concomitant]
     Indication: COAGULOPATHY
     Dosage: UNK, UNKNOWN
     Route: 065
     Dates: start: 20070801
  12. DUPHALAC [Concomitant]
     Indication: LAXATIVE SUPPORTIVE CARE
     Dosage: UNK, UNKNOWN
     Route: 065
     Dates: start: 20070801
  13. SERENACE [Concomitant]
     Indication: SEDATIVE THERAPY
     Dosage: UNK, UNKNOWN
     Route: 065
     Dates: start: 20070806, end: 20070809
  14. AUGMENTIN                               /SCH/ [Concomitant]
     Dosage: UNK, UNKNOWN
     Route: 065
     Dates: start: 20070804, end: 20070808
  15. AMIKACIN [Concomitant]
     Dosage: UNK, UNKNOWN
     Route: 065
     Dates: start: 20070804, end: 20070808
  16. METROGYL [Concomitant]
     Dosage: UNK, UNKNOWN
     Route: 065
     Dates: start: 20070804, end: 20070808
  17. VITAMIN K [Concomitant]
     Indication: COAGULATION TEST ABNORMAL
     Dosage: UNK, UNKNOWN
     Route: 065
     Dates: start: 20070808
  18. DUOLIN [Concomitant]
     Dosage: UNK, UNKNOWN
     Dates: start: 20070804
  19. FLUANXOL [Concomitant]
     Indication: ANTIDEPRESSANT THERAPY
     Dosage: UNK, UNKNOWN
     Route: 065
     Dates: start: 20070804
  20. DICLOFENAC SODIUM [Concomitant]
     Indication: PAIN
     Dosage: UNK, UNKNOWN
     Route: 065
     Dates: start: 20070728, end: 20070731
  21. CALMPOSE [Concomitant]
     Indication: INSOMNIA
     Dosage: UNK, UNKNOWN
     Route: 065
     Dates: start: 20070728, end: 20070731
  22. FOLIC ACID [Concomitant]
     Indication: SUPPLEMENTATION THERAPY
     Dosage: 5 MG, DAILY (1/D)
     Route: 048
     Dates: start: 20070801
  23. VITAMIN B-12 [Concomitant]
     Indication: SUPPLEMENTATION THERAPY
     Dosage: 1000 UG, DAILY (1/D)
     Route: 030
     Dates: start: 20070731, end: 20070731
  24. DEXAMETHASONE TAB [Concomitant]
     Indication: SUPPLEMENTATION THERAPY
     Dosage: 4 MG, 2/D
     Route: 048
     Dates: start: 20070805, end: 20070807

REACTIONS (2)
  - ACUTE LEFT VENTRICULAR FAILURE [None]
  - ACUTE RESPIRATORY DISTRESS SYNDROME [None]
